FAERS Safety Report 18225782 (Version 2)
Quarter: 2020Q3

REPORT INFORMATION
  Report Type: Other
  Country: CO (occurrence: CO)
  Receive Date: 20200903
  Receipt Date: 20200922
  Transmission Date: 20201103
  Serious: Yes (Hospitalization, Other)
  Sender: FDA-Public Use
  Company Number: CO-INNOGENIX, LLC-2089352

PATIENT
  Age: 18 Year
  Sex: Male

DRUGS (1)
  1. HALOPERIDOL. [Suspect]
     Active Substance: HALOPERIDOL
     Indication: AGITATION
     Route: 042

REACTIONS (3)
  - Rhabdomyolysis [Unknown]
  - Hypernatraemia [Recovering/Resolving]
  - Neuroleptic malignant syndrome [Recovering/Resolving]
